FAERS Safety Report 13075949 (Version 1)
Quarter: 2016Q4

REPORT INFORMATION
  Report Type: Spontaneous
  Country: US (occurrence: US)
  Receive Date: 20161229
  Receipt Date: 20161229
  Transmission Date: 20170207
  Serious: Yes (Hospitalization)
  Sender: FDA-Public Use
  Company Number: None

PATIENT
  Age: 12 Year
  Sex: Male
  Weight: 41.2 kg

DRUGS (6)
  1. CYTARABINE. [Suspect]
     Active Substance: CYTARABINE
     Dates: end: 20161207
  2. MERCAPTOPURINE. [Suspect]
     Active Substance: MERCAPTOPURINE
     Dates: end: 20161208
  3. ONCASPAR [Suspect]
     Active Substance: PEGASPARGASE
     Dates: end: 20161123
  4. VINCRISTINE SULFATE. [Suspect]
     Active Substance: VINCRISTINE SULFATE
     Dates: end: 20161207
  5. HYDROCORTISONE. [Suspect]
     Active Substance: HYDROCORTISONE
     Dates: end: 20161207
  6. METHOTREXATE. [Concomitant]
     Active Substance: METHOTREXATE
     Dates: end: 20161207

REACTIONS (14)
  - Acute kidney injury [None]
  - Tachypnoea [None]
  - Asthenia [None]
  - Pancreatitis acute [None]
  - Poor peripheral circulation [None]
  - Abdominal pain [None]
  - Ascites [None]
  - Nausea [None]
  - Respiratory failure [None]
  - Multiple organ dysfunction syndrome [None]
  - Tachycardia [None]
  - Pleural effusion [None]
  - Vomiting [None]
  - Urine output decreased [None]

NARRATIVE: CASE EVENT DATE: 20161209
